FAERS Safety Report 6245272-6 (Version None)
Quarter: 2009Q2

REPORT INFORMATION
  Report Type: 
  Country: None (occurrence: None)
  Receive Date: 20090625
  Receipt Date: 20090619
  Transmission Date: 20091009
  Serious: Yes (Other)
  Sender: FDA-Public Use
  Company Number: JP-MERCK-0906USA04276

PATIENT
  Age: 91 Year
  Sex: Female

DRUGS (8)
  1. PRIMAXIN [Suspect]
     Route: 042
     Dates: start: 20090615, end: 20090619
  2. AMLODIPINE [Concomitant]
     Route: 048
  3. BLOPRESS [Concomitant]
     Route: 048
  4. EPINAZION [Concomitant]
     Route: 048
  5. FAMOTIDINE [Concomitant]
     Route: 048
  6. UBTEC [Concomitant]
     Route: 048
  7. LAC-B [Concomitant]
     Route: 048
  8. ZYPREXA [Concomitant]
     Route: 048
     Dates: end: 20090617

REACTIONS (1)
  - EPILEPSY [None]
